FAERS Safety Report 5022762-5 (Version None)
Quarter: 2006Q2

REPORT INFORMATION
  Report Type: 
  Country: None (occurrence: None)
  Receive Date: 20060609
  Receipt Date: 20060320
  Transmission Date: 20061013
  Serious: Yes (Death, Hospitalization)
  Sender: FDA-Public Use
  Company Number: CA-BOEHRINGER INGELHEIM PHARMACEUTICALS, INC.-2006-CN-00166CN

PATIENT
  Age: 86 Year
  Sex: Male

DRUGS (10)
  1. MOBICOX TABLETS [Suspect]
     Dates: end: 20051101
  2. GLUCOSAMINE [Concomitant]
  3. PREDNISONE [Concomitant]
     Indication: SKIN ULCER
  4. AMANTADINE HCL [Concomitant]
  5. CARDIZEM [Concomitant]
  6. LASIX [Concomitant]
  7. ZANTAC [Concomitant]
  8. PROLOPA [Concomitant]
     Indication: TREMOR
  9. INDERAL [Concomitant]
  10. MULTIVITAMIN [Concomitant]

REACTIONS (2)
  - GASTRIC HAEMORRHAGE [None]
  - SKIN ULCER [None]
